FAERS Safety Report 9691005 (Version 1)
Quarter: 2013Q4

REPORT INFORMATION
  Report Type: Spontaneous
  Country: NL (occurrence: NL)
  Receive Date: 20131115
  Receipt Date: 20131115
  Transmission Date: 20140711
  Serious: Yes (Life-Threatening, Other)
  Sender: FDA-Public Use
  Company Number: NL-IPSEN BIOPHARMACEUTICALS, INC.-2013-4933

PATIENT
  Age: 59 Year
  Sex: Male

DRUGS (1)
  1. SOMATULINE AUTOSOLUTION 90MG(LANREOTIDE AUTOGEL) (LANREOTIDE) (LANREOTIDE ACETATE) [Suspect]
     Indication: PRODUCT USED FOR UNKNOWN INDICATION
     Dosage: 90 MG
     Route: 058
     Dates: start: 20130523, end: 20131010

REACTIONS (1)
  - Terminal state [Unknown]
